FAERS Safety Report 9456542 (Version 1)
Quarter: 2013Q3

REPORT INFORMATION
  Report Type: Spontaneous
  Country: US (occurrence: US)
  Receive Date: 20130813
  Receipt Date: 20130813
  Transmission Date: 20140515
  Serious: No
  Sender: FDA-Public Use
  Company Number: US-B.I. PHARMACEUTICALS,INC./RIDGEFIELD-2013-BI-23918BP

PATIENT
  Sex: Female

DRUGS (5)
  1. SPIRIVA [Suspect]
     Indication: ASTHMA
     Dosage: 18 MCG
     Route: 055
     Dates: start: 2004
  2. LEVOTHYROXINE [Concomitant]
     Indication: THYROID DISORDER
     Dosage: (CAPLET)
     Route: 048
     Dates: start: 2003
  3. CLARITIN [Concomitant]
     Indication: SEASONAL ALLERGY
  4. PULMICORT [Concomitant]
     Indication: ASTHMA
     Route: 055
     Dates: start: 2003
  5. GABAPENTIN [Concomitant]
     Indication: NEUROPATHY PERIPHERAL
     Route: 048
     Dates: start: 2003

REACTIONS (4)
  - Cough [Recovered/Resolved]
  - Thirst [Not Recovered/Not Resolved]
  - Off label use [Recovered/Resolved]
  - Product quality issue [Not Recovered/Not Resolved]
